FAERS Safety Report 15757092 (Version 1)
Quarter: 2018Q4

REPORT INFORMATION
  Report Type: Report from Study
  Country: CN (occurrence: CN)
  Receive Date: 20181224
  Receipt Date: 20181224
  Transmission Date: 20190205
  Serious: Yes (Death)
  Sender: FDA-Public Use
  Company Number: CN-PFIZER INC-2018523151

PATIENT

DRUGS (3)
  1. ETOPOSIDE. [Suspect]
     Active Substance: ETOPOSIDE
     Indication: SMALL CELL LUNG CANCER
     Dosage: 60 MG/M2, CYCLIC (FIVE 2-WEEK COURSES, ON DAY 1-3)
     Route: 042
  2. CISPLATIN. [Suspect]
     Active Substance: CISPLATIN
     Indication: SMALL CELL LUNG CANCER
     Dosage: 25 MG/M2, CYCLIC (FIVE 2-WEEK COURSES, ON DAY 1 AND 8)
     Route: 042
  3. IRINOTECAN HCL [Suspect]
     Active Substance: IRINOTECAN HYDROCHLORIDE
     Indication: SMALL CELL LUNG CANCER
     Dosage: 90 MG/M2, CYCLIC (FIVE 2-WEEK COURSES, ON DAY 8)
     Route: 042

REACTIONS (2)
  - Lung infection [Fatal]
  - Febrile neutropenia [Fatal]
